FAERS Safety Report 13700369 (Version 1)
Quarter: 2017Q2

REPORT INFORMATION
  Report Type: Spontaneous
  Country: US (occurrence: US)
  Receive Date: 20170629
  Receipt Date: 20170629
  Transmission Date: 20170830
  Serious: No
  Sender: FDA-Public Use
  Company Number: US-BAYER-2017-114420

PATIENT
  Sex: Female

DRUGS (2)
  1. MIRALAX [Suspect]
     Active Substance: POLYETHYLENE GLYCOL 3350
     Indication: GASTROINTESTINAL DISORDER
     Route: 065
  2. GABAPENTIN. [Concomitant]
     Active Substance: GABAPENTIN

REACTIONS (9)
  - Off label use [Unknown]
  - Enamel anomaly [Unknown]
  - Product quality issue [Unknown]
  - Inappropriate prescribing [Unknown]
  - Poor quality drug administered [Unknown]
  - Product physical consistency issue [Unknown]
  - Drug effect delayed [Unknown]
  - Wrong technique in product usage process [Unknown]
  - Tooth injury [Unknown]
